FAERS Safety Report 8873119 (Version 1)
Quarter: 2012Q4

REPORT INFORMATION
  Report Type: Spontaneous
  Country: US (occurrence: None)
  Receive Date: 20121026
  Receipt Date: 20121026
  Transmission Date: 20130627
  Serious: No
  Sender: FDA-Public Use
  Company Number: None

PATIENT
  Age: 62 Year
  Sex: Male
  Weight: 80 kg

DRUGS (41)
  1. CRESTOR [Suspect]
     Indication: ARDS
     Route: 048
     Dates: start: 20121008
  2. CRESTOR [Suspect]
     Indication: ARDS
     Route: 048
     Dates: start: 20121008
  3. CRESTOR [Suspect]
     Indication: ARDS
     Route: 048
     Dates: start: 20121009, end: 20121017
  4. CRESTOR [Suspect]
     Indication: ARDS
     Route: 048
     Dates: start: 20121009, end: 20121017
  5. CALCIUM CARBONATE [Concomitant]
  6. CALCIUM GLUCONATE [Concomitant]
  7. DOCUSATE SODIUM [Concomitant]
  8. FAMOTIDINE [Concomitant]
  9. FUROSEMIDE [Concomitant]
  10. HEPARIN [Concomitant]
  11. LEVOTHYROXINE SODIUM [Concomitant]
  12. MUPIROCIN OINTMENT [Concomitant]
  13. NYSTATIN [Concomitant]
  14. ZOLPIDEM TARTRATE [Concomitant]
  15. INSULIN [Concomitant]
  16. IPRATROPIUM/ALBUTEROL [Concomitant]
  17. MAGNESIUM OXIDE [Concomitant]
  18. FLU VACCINE [Concomitant]
  19. ALBUMIN HUMAN [Concomitant]
  20. POLYETHYLENE GLYCOL [Suspect]
  21. AZITHROMYCIN [Concomitant]
  22. CALCIUM CHLORIDE [Concomitant]
  23. CHLORHEXIDINE [Concomitant]
  24. CEFTRIAXONE [Concomitant]
  25. HYDOCORTISONE [Concomitant]
  26. NACL SOLUTION [Concomitant]
  27. OMEPRAZOLE [Concomitant]
  28. PIPERACILL/TAZOBACTAM [Concomitant]
  29. VANCOMYCIN [Concomitant]
  30. ACETAMINOPHEN [Concomitant]
  31. AMIODARONE [Concomitant]
  32. FENTANYL [Concomitant]
  33. MIDAZOLAM [Concomitant]
  34. NOREPINEPHRINE [Concomitant]
  35. KCL [Concomitant]
  36. VASOPRESSIN [Concomitant]
  37. DILTIAZEM [Concomitant]
  38. FOIC ACID [Concomitant]
  39. D5W SOLUTION [Concomitant]
  40. D5W/NACL [Concomitant]
  41. D50 SOLUTION [Concomitant]

REACTIONS (3)
  - Aspartate aminotransferase increased [None]
  - Alanine aminotransferase increased [None]
  - Blood creatine phosphokinase increased [None]
